FAERS Safety Report 12776328 (Version 2)
Quarter: 2017Q2

REPORT INFORMATION
  Report Type: Spontaneous
  Country: PT (occurrence: PT)
  Receive Date: 20160923
  Receipt Date: 20170403
  Transmission Date: 20170830
  Serious: Yes (Other)
  Sender: FDA-Public Use
  Company Number: PT-TEVA-694079ISR

PATIENT
  Age: 14 Year
  Sex: Male

DRUGS (1)
  1. IBUPROFEN. [Suspect]
     Active Substance: IBUPROFEN
     Indication: PRODUCT USED FOR UNKNOWN INDICATION
     Route: 065

REACTIONS (8)
  - Wheezing [Unknown]
  - Anaphylactic reaction [Unknown]
  - Face oedema [Unknown]
  - Pruritus [Unknown]
  - Cough [Unknown]
  - Bronchospasm [Unknown]
  - Periorbital oedema [Unknown]
  - Angioedema [Unknown]
